FAERS Safety Report 9489976 (Version 1)
Quarter: 2013Q3

REPORT INFORMATION
  Report Type: Spontaneous
  Country: FR (occurrence: FR)
  Receive Date: 20130829
  Receipt Date: 20130829
  Transmission Date: 20140515
  Serious: Yes (Other)
  Sender: FDA-Public Use
  Company Number: FR-ROCHE-1266072

PATIENT
  Age: 36 Year
  Sex: Female

DRUGS (7)
  1. HERCEPTIN [Suspect]
     Indication: INVASIVE LOBULAR BREAST CARCINOMA
     Route: 042
     Dates: start: 20130617
  2. HERCEPTIN [Suspect]
     Route: 042
     Dates: start: 20130718
  3. TAXOTERE [Suspect]
     Indication: INVASIVE LOBULAR BREAST CARCINOMA
     Route: 042
     Dates: start: 20130617
  4. TAXOTERE [Suspect]
     Route: 042
     Dates: start: 20130718
  5. CYCLOPHOSPHAMIDE [Concomitant]
     Route: 065
  6. EPIRUBICIN [Concomitant]
     Route: 065
  7. 5-FU [Concomitant]
     Route: 065

REACTIONS (6)
  - Stomatitis [Recovered/Resolved]
  - Diarrhoea [Recovered/Resolved]
  - Abdominal pain [Recovered/Resolved]
  - Myalgia [Recovered/Resolved]
  - Arthralgia [Recovered/Resolved]
  - Agranulocytosis [Recovered/Resolved]
